FAERS Safety Report 23992530 (Version 4)
Quarter: 2025Q3

REPORT INFORMATION
  Report Type: Spontaneous
  Country: GB (occurrence: GB)
  Receive Date: 20240620
  Receipt Date: 20250709
  Transmission Date: 20251020
  Serious: Yes (Hospitalization, Disabling, Other)
  Sender: ALKEM
  Company Number: None

PATIENT
  Age: 86 Year
  Sex: Female
  Weight: 91 kg

DRUGS (43)
  1. ESOMEPRAZOLE MAGNESIUM [Suspect]
     Active Substance: ESOMEPRAZOLE MAGNESIUM
     Indication: Reflux laryngitis
     Route: 065
  2. LANSOPRAZOLE [Suspect]
     Active Substance: LANSOPRAZOLE
     Indication: Cerebrovascular accident prophylaxis
     Dosage: 30 MILLIGRAM, QD (EVERY MORNING)
     Route: 048
  3. LANSOPRAZOLE [Suspect]
     Active Substance: LANSOPRAZOLE
     Route: 065
  4. APIXABAN [Suspect]
     Active Substance: APIXABAN
     Indication: Atrial fibrillation
     Dosage: 5 MILLIGRAM, QD
     Route: 065
  5. APIXABAN [Suspect]
     Active Substance: APIXABAN
     Route: 042
  6. APIXABAN [Suspect]
     Active Substance: APIXABAN
     Route: 065
  7. CETIRIZINE HYDROCHLORIDE [Suspect]
     Active Substance: CETIRIZINE HYDROCHLORIDE
     Indication: Cerebrovascular accident prophylaxis
     Dosage: 10 MILLIGRAM, QD (ONCE A DAY IN THE MORNING)
     Route: 048
  8. DAPAGLIFLOZIN [Suspect]
     Active Substance: DAPAGLIFLOZIN
     Indication: Atrial fibrillation
     Dosage: 10 MILLIGRAM, QD (DAILY, FILM-COATED TABLETS)
     Route: 048
  9. DAPAGLIFLOZIN [Suspect]
     Active Substance: DAPAGLIFLOZIN
     Indication: Cerebrovascular accident prophylaxis
  10. DAPAGLIFLOZIN [Suspect]
     Active Substance: DAPAGLIFLOZIN
     Indication: Ill-defined disorder
  11. NAPROXEN [Suspect]
     Active Substance: NAPROXEN
     Indication: Product used for unknown indication
     Route: 065
  12. BISOPROLOL FUMARATE [Suspect]
     Active Substance: BISOPROLOL FUMARATE
     Indication: Product used for unknown indication
     Dosage: 10 MILLIGRAM, QD (DAILY)
     Route: 065
  13. BISOPROLOL FUMARATE [Suspect]
     Active Substance: BISOPROLOL FUMARATE
     Route: 065
  14. CANDESARTAN CILEXETIL [Suspect]
     Active Substance: CANDESARTAN CILEXETIL
     Indication: Ill-defined disorder
     Dosage: 2 MILLIGRAM, QD (DAILY, MORNING)
     Route: 048
  15. ASTRAZENECA COVID-19 VACCINE [Suspect]
     Active Substance: AZD-1222
     Indication: COVID-19 immunisation
     Route: 065
  16. DIGOXIN [Suspect]
     Active Substance: DIGOXIN
     Indication: Reflux laryngitis
     Dosage: 4 MICROGRAM, QD (DAILY)
     Route: 065
  17. DIGOXIN [Suspect]
     Active Substance: DIGOXIN
     Indication: Cerebrovascular accident prophylaxis
     Dosage: 62.5 MICROGRAM, QD (MORNING)
     Route: 065
  18. ELIQUIS [Suspect]
     Active Substance: APIXABAN
     Indication: Atrial fibrillation
     Dosage: 5 MILLIGRAM, QD
     Route: 065
     Dates: start: 20180207
  19. ELIQUIS [Suspect]
     Active Substance: APIXABAN
     Indication: Cerebrovascular accident
     Dosage: 10 MILLIGRAM, QD
     Route: 065
  20. ELIQUIS [Suspect]
     Active Substance: APIXABAN
     Indication: Cerebrovascular accident prophylaxis
  21. FELODIPINE [Suspect]
     Active Substance: FELODIPINE
     Indication: Coronary artery disease
     Dosage: 2.5 MILLIGRAM, OD
     Route: 065
  22. FELODIPINE [Suspect]
     Active Substance: FELODIPINE
     Indication: Blood pressure measurement
  23. HYDROCHLOROTHIAZIDE [Suspect]
     Active Substance: HYDROCHLOROTHIAZIDE
     Indication: Product used for unknown indication
     Dosage: 2 MILLIGRAM, OD
     Route: 048
  24. HYDROCHLOROTHIAZIDE [Suspect]
     Active Substance: HYDROCHLOROTHIAZIDE
     Dosage: 2 MILLIGRAM, QD, MORNING
     Route: 048
  25. IMDUR [Suspect]
     Active Substance: ISOSORBIDE MONONITRATE
     Indication: Coronary artery disease
     Dosage: 50 MILLIGRAM, QD
     Route: 048
  26. ISOSORBIDE DINITRATE [Suspect]
     Active Substance: ISOSORBIDE DINITRATE
     Indication: Product used for unknown indication
     Route: 065
  27. ISOSORBIDE MONONITRATE [Suspect]
     Active Substance: ISOSORBIDE MONONITRATE
     Indication: Product used for unknown indication
     Route: 065
  28. LEVOTHYROXINE SODIUM [Suspect]
     Active Substance: LEVOTHYROXINE SODIUM
     Indication: Atrial fibrillation
     Dosage: 5 GRAM, OD (ONCE A DAY)
     Route: 066
  29. LINAGLIPTIN [Suspect]
     Active Substance: LINAGLIPTIN
     Indication: Product used for unknown indication
     Dosage: 5 MILLIGRAM, QD (EVERY MORNING) (TRAJENTA)
     Route: 065
  30. SIMVASTATIN [Suspect]
     Active Substance: SIMVASTATIN
     Indication: Atrial fibrillation
     Route: 065
  31. SIMVASTATIN [Suspect]
     Active Substance: SIMVASTATIN
     Route: 065
  32. SIMVASTATIN [Suspect]
     Active Substance: SIMVASTATIN
     Route: 065
  33. LINAGLIPTIN [Suspect]
     Active Substance: LINAGLIPTIN
     Indication: Product used for unknown indication
     Dosage: 5 MILLIGRAM, QD (EVERY MORNING)
     Route: 065
  34. LINAGLIPTIN [Suspect]
     Active Substance: LINAGLIPTIN
     Dosage: 5 MICROGRAM, QD
     Route: 065
  35. ZOCOR [Suspect]
     Active Substance: SIMVASTATIN
     Indication: Product used for unknown indication
     Route: 065
  36. ASPIRIN [Concomitant]
     Active Substance: ASPIRIN
     Indication: Product used for unknown indication
     Route: 065
     Dates: start: 20230126
  37. AMITRIPTYLINE HYDROCHLORIDE [Concomitant]
     Active Substance: AMITRIPTYLINE HYDROCHLORIDE
     Indication: Product used for unknown indication
     Route: 065
     Dates: start: 20221123
  38. BENDROFLUMETHIAZIDE [Concomitant]
     Active Substance: BENDROFLUMETHIAZIDE
     Indication: Product used for unknown indication
     Route: 065
     Dates: start: 20221123
  39. BISOPROLOL [Concomitant]
     Active Substance: BISOPROLOL
     Indication: Product used for unknown indication
     Route: 065
     Dates: start: 20230301
  40. BUMETANIDE [Concomitant]
     Active Substance: BUMETANIDE
     Indication: Product used for unknown indication
     Route: 065
     Dates: start: 20220525, end: 20230217
  41. ESTRIOL [Concomitant]
     Active Substance: ESTRIOL
     Indication: Product used for unknown indication
     Route: 065
     Dates: start: 20221123
  42. FOSFOMYCIN [Concomitant]
     Active Substance: FOSFOMYCIN
     Indication: Product used for unknown indication
     Route: 065
     Dates: start: 20230227, end: 20230228
  43. OMEPRAZOLE [Concomitant]
     Active Substance: OMEPRAZOLE
     Indication: Product used for unknown indication
     Route: 065
     Dates: start: 20221123

REACTIONS (74)
  - Blood glucose increased [Unknown]
  - Subarachnoid haemorrhage [Recovered/Resolved with Sequelae]
  - Myocardial infarction [Recovered/Resolved with Sequelae]
  - COVID-19 [Recovered/Resolved with Sequelae]
  - Transient ischaemic attack [Recovered/Resolved]
  - Carotid artery occlusion [Recovered/Resolved]
  - Anosmia [Recovered/Resolved]
  - Angioedema [Recovered/Resolved]
  - Amnesia [Not Recovered/Not Resolved]
  - Anxiety [Not Recovered/Not Resolved]
  - Blindness [Recovered/Resolved]
  - Blindness [Recovered/Resolved]
  - Cardiospasm [Not Recovered/Not Resolved]
  - Cognitive disorder [Recovered/Resolved]
  - Dehydration [Unknown]
  - Sleep terror [Recovered/Resolved]
  - Facial pain [Recovered/Resolved]
  - Dry skin [Not Recovered/Not Resolved]
  - Heart rate increased [Recovering/Resolving]
  - Pericarditis [Not Recovered/Not Resolved]
  - Feeling abnormal [Unknown]
  - Pain of skin [Recovered/Resolved]
  - Vasculitis [Not Recovered/Not Resolved]
  - Pain [Recovered/Resolved]
  - Immunisation [Recovered/Resolved]
  - Diplopia [Not Recovered/Not Resolved]
  - Palmoplantar keratoderma [Not Recovered/Not Resolved]
  - Muscle twitching [Unknown]
  - Adverse drug reaction [Not Recovered/Not Resolved]
  - Memory impairment [Recovered/Resolved]
  - Palpitations [Unknown]
  - Hyperhidrosis [Unknown]
  - Back pain [Unknown]
  - Abdominal pain upper [Unknown]
  - Atrial tachycardia [Not Recovered/Not Resolved]
  - Abdominal discomfort [Unknown]
  - Abdominal discomfort [Recovered/Resolved]
  - Alopecia [Recovered/Resolved with Sequelae]
  - Arthralgia [Recovered/Resolved]
  - Chest pain [Unknown]
  - Diarrhoea [Recovered/Resolved]
  - Disturbance in attention [Recovered/Resolved]
  - Dizziness [Recovered/Resolved]
  - Dyspnoea [Unknown]
  - Eye pruritus [Recovered/Resolved]
  - Fatigue [Unknown]
  - Fatigue [Recovered/Resolved]
  - Hallucination [Recovered/Resolved]
  - Tension headache [Not Recovered/Not Resolved]
  - Insomnia [Unknown]
  - Lip swelling [Recovering/Resolving]
  - Malaise [Unknown]
  - Migraine [Not Recovered/Not Resolved]
  - Muscular weakness [Unknown]
  - Nausea [Recovered/Resolved]
  - Peripheral swelling [Recovered/Resolved]
  - Pruritus [Recovering/Resolving]
  - Pruritus genital [Recovered/Resolved]
  - Pyrexia [Unknown]
  - Rash [Recovering/Resolving]
  - Tachycardia [Unknown]
  - Tinnitus [Not Recovered/Not Resolved]
  - Malaise [Unknown]
  - Ventricular tachycardia [Not Recovered/Not Resolved]
  - Visual impairment [Not Recovered/Not Resolved]
  - Vomiting [Recovered/Resolved]
  - Incorrect product administration duration [Unknown]
  - Intentional product use issue [Unknown]
  - Intentional product misuse [Unknown]
  - Medication error [Unknown]
  - Off label use [Unknown]
  - Product use issue [Unknown]
  - Intentional product misuse [Unknown]
  - Product use in unapproved indication [Unknown]

NARRATIVE: CASE EVENT DATE: 20180207
